FAERS Safety Report 24675861 (Version 2)
Quarter: 2025Q1

REPORT INFORMATION
  Report Type: Spontaneous
  Country: CH (occurrence: CH)
  Receive Date: 20241128
  Receipt Date: 20250220
  Transmission Date: 20250408
  Serious: Yes (Hospitalization, Disabling)
  Sender: TEVA
  Company Number: None

PATIENT
  Age: 49 Year
  Sex: Male

DRUGS (23)
  1. METHOTREXATE [Suspect]
     Active Substance: METHOTREXATE
     Indication: Metastases to meninges
     Route: 037
     Dates: start: 20240423, end: 20240826
  2. METHOTREXATE [Suspect]
     Active Substance: METHOTREXATE
     Indication: Metastases to meninges
     Route: 037
     Dates: start: 20230710, end: 20231004
  3. VALACYCLOVIR HYDROCHLORIDE [Concomitant]
     Active Substance: VALACYCLOVIR HYDROCHLORIDE
     Indication: Product used for unknown indication
     Route: 048
  4. LEUCOVORIN [Concomitant]
     Active Substance: LEUCOVORIN\LEUCOVORIN CALCIUM
     Indication: Product used for unknown indication
     Route: 048
     Dates: start: 20240424, end: 20240828
  5. LEUCOVORIN [Concomitant]
     Active Substance: LEUCOVORIN\LEUCOVORIN CALCIUM
     Indication: Product used for unknown indication
     Route: 048
     Dates: start: 20230711, end: 20231006
  6. HYDROCORTISONE [Concomitant]
     Active Substance: HYDROCORTISONE
     Indication: Product used for unknown indication
     Dosage: 1-0-0
     Route: 048
  7. PANTOZOL [Concomitant]
     Active Substance: PANTOPRAZOLE SODIUM
     Indication: Product used for unknown indication
     Dosage: 1-0-0
     Route: 048
  8. PREGABALIN [Concomitant]
     Active Substance: PREGABALIN
     Indication: Product used for unknown indication
     Dosage: 1-1-1
     Route: 048
     Dates: start: 20240823, end: 20240825
  9. PREGABALIN [Concomitant]
     Active Substance: PREGABALIN
     Indication: Product used for unknown indication
     Dosage: 1-1-1
     Route: 065
     Dates: start: 20240826
  10. DEXAMETHASONE [Concomitant]
     Active Substance: DEXAMETHASONE
     Indication: Metastases to meninges
     Route: 037
     Dates: start: 20240423, end: 20240826
  11. DEXAMETHASONE [Concomitant]
     Active Substance: DEXAMETHASONE
     Indication: Metastases to meninges
     Route: 037
     Dates: start: 20230710, end: 20231004
  12. CYTARABINE [Suspect]
     Active Substance: CYTARABINE
     Indication: Metastases to meninges
     Route: 037
     Dates: start: 20240423, end: 20240826
  13. CYTARABINE [Suspect]
     Active Substance: CYTARABINE
     Indication: Metastases to meninges
     Route: 037
     Dates: start: 20230710, end: 20231004
  14. CALCIUM CARBONATE\CHOLECALCIFEROL [Concomitant]
     Active Substance: CALCIUM CARBONATE\CHOLECALCIFEROL
     Indication: Product used for unknown indication
     Route: 048
     Dates: start: 20240826
  15. HERBALS [Concomitant]
     Active Substance: HERBALS
     Indication: Product used for unknown indication
     Dosage: 1-0-0
     Route: 048
     Dates: start: 20240816
  16. HEPARIN [Concomitant]
     Active Substance: HEPARIN SODIUM
     Indication: Product used for unknown indication
     Dosage: HEPARIN SODIUM
     Route: 040
     Dates: start: 20240716
  17. SULFAMETHOXAZOLE\TRIMETHOPRIM [Concomitant]
     Active Substance: SULFAMETHOXAZOLE\TRIMETHOPRIM
     Indication: Product used for unknown indication
     Dosage: NOPIL FORTE 800/160 MG
     Route: 048
  18. MOVICOL [Concomitant]
     Active Substance: POLYETHYLENE GLYCOL 3350\POTASSIUM CHLORIDE\SODIUM BICARBONATE\SODIUM CHLORIDE
     Indication: Product used for unknown indication
     Dosage: 1-0-0
     Route: 048
     Dates: start: 20240821
  19. DIFLUCAN [Concomitant]
     Active Substance: FLUCONAZOLE
     Indication: Product used for unknown indication
     Route: 048
  20. TRAZODONE HYDROCHLORIDE [Concomitant]
     Active Substance: TRAZODONE HYDROCHLORIDE
     Indication: Product used for unknown indication
     Route: 048
  21. Redormin [Concomitant]
     Indication: Product used for unknown indication
     Route: 048
  22. VITAMINS [Concomitant]
     Active Substance: VITAMINS
     Indication: Product used for unknown indication
     Dosage: BECOZYM FORTE 1-0-0
     Route: 048
  23. Vitamin a blache [Concomitant]
     Indication: Product used for unknown indication
     Route: 061

REACTIONS (1)
  - Subacute combined cord degeneration [Not Recovered/Not Resolved]

NARRATIVE: CASE EVENT DATE: 20240826
